FAERS Safety Report 11944574 (Version 1)
Quarter: 2016Q1

REPORT INFORMATION
  Report Type: Report from Study
  Country: IN (occurrence: IN)
  Receive Date: 20160125
  Receipt Date: 20160125
  Transmission Date: 20160526
  Serious: Yes (Death)
  Sender: FDA-Public Use
  Company Number: PHHY2016IN008150

PATIENT

DRUGS (2)
  1. WYSOLONE [Suspect]
     Active Substance: PREDNISOLONE
     Indication: CHRONIC OBSTRUCTIVE PULMONARY DISEASE
     Dosage: 20 MG, QD
     Route: 051
     Dates: start: 20151221
  2. SEQUADRA INHALER [Suspect]
     Active Substance: GLYCOPYRRONIUM\INDACATEROL
     Indication: CHRONIC OBSTRUCTIVE PULMONARY DISEASE
     Dosage: 1 DF, QD (110/50MG)
     Route: 055
     Dates: start: 20151221

REACTIONS (3)
  - Haematemesis [Fatal]
  - Heart rate decreased [Fatal]
  - Decreased appetite [Fatal]

NARRATIVE: CASE EVENT DATE: 20160113
